FAERS Safety Report 5478296-7 (Version None)
Quarter: 2007Q4

REPORT INFORMATION
  Report Type: 
  Country: None (occurrence: None)
  Receive Date: 20071005
  Receipt Date: 20071003
  Transmission Date: 20080405
  Serious: Yes (Hospitalization)
  Sender: FDA-Public Use
  Company Number: CA-ASTRAZENECA-2007UW23082

PATIENT
  Sex: Male
  Weight: 81.8 kg

DRUGS (2)
  1. CRESTOR [Suspect]
     Indication: BLOOD CHOLESTEROL
     Route: 048
     Dates: start: 20070601, end: 20070911
  2. CRESTOR [Suspect]
     Route: 048
     Dates: start: 20070912

REACTIONS (1)
  - CORONARY ARTERY BYPASS [None]
